FAERS Safety Report 5804526-5 (Version None)
Quarter: 2008Q3

REPORT INFORMATION
  Report Type: 
  Country: None (occurrence: None)
  Receive Date: 20080709
  Receipt Date: 20080630
  Transmission Date: 20090109
  Serious: Yes (Hospitalization, Other)
  Sender: FDA-Public Use
  Company Number: BR-ABBOTT-08P-020-0455310-00

PATIENT
  Sex: Female
  Weight: 63 kg

DRUGS (5)
  1. HUMIRA [Suspect]
     Indication: PSORIATIC ARTHROPATHY
     Route: 058
     Dates: start: 20071021, end: 20080301
  2. PREDNISONE TAB [Concomitant]
     Indication: PSORIATIC ARTHROPATHY
     Route: 048
  3. CALCIUM [Concomitant]
     Indication: DRUG USE FOR UNKNOWN INDICATION
     Dosage: 1 TAB PER DAY IN THE MORNING
     Route: 048
  4. NIMESULIDE [Concomitant]
     Indication: PSORIATIC ARTHROPATHY
     Route: 048
  5. PREDNISOLONE SODIUM PHOSPHATE [Concomitant]
     Indication: PSORIATIC ARTHROPATHY
     Route: 048

REACTIONS (2)
  - BRAIN COMPRESSION [None]
  - PAIN IN EXTREMITY [None]
